FAERS Safety Report 7493901-1 (Version None)
Quarter: 2011Q2

REPORT INFORMATION
  Report Type: 
  Country: None (occurrence: None)
  Receive Date: 20110520
  Receipt Date: 20110517
  Transmission Date: 20111010
  Serious: Yes (Other)
  Sender: FDA-Public Use
  Company Number: US-ROCHE-773359

PATIENT
  Sex: Male
  Weight: 73.9 kg

DRUGS (3)
  1. CARBOPLATIN [Concomitant]
     Route: 042
     Dates: start: 20110329
  2. DOCETAXEL [Concomitant]
     Route: 042
     Dates: start: 20110329
  3. AVASTIN [Suspect]
     Dosage: FORM: INFUSION.
     Route: 042
     Dates: start: 20110308, end: 20110329

REACTIONS (1)
  - CHEMICAL INJURY [None]
